FAERS Safety Report 21343913 (Version 2)
Quarter: 2022Q3

REPORT INFORMATION
  Report Type: Spontaneous
  Country: US (occurrence: US)
  Receive Date: 20220916
  Receipt Date: 20220922
  Transmission Date: 20221027
  Serious: Yes (Hospitalization, Other)
  Sender: FDA-Public Use
  Company Number: US-MYOVANT SCIENCES GMBH-2022MYSCI0900164

PATIENT
  Sex: Male

DRUGS (1)
  1. ORGOVYX [Suspect]
     Active Substance: RELUGOLIX
     Indication: Prostate cancer
     Dosage: 120 MILLIGRAM, QD
     Route: 048

REACTIONS (10)
  - Prostate cancer [Unknown]
  - Blood sodium decreased [Unknown]
  - Prostate cancer metastatic [Unknown]
  - Feeling abnormal [Unknown]
  - Asthenia [Unknown]
  - Headache [Unknown]
  - Product physical issue [Unknown]
  - Weight decreased [Unknown]
  - Pain [Unknown]
  - Anaemia [Unknown]
